FAERS Safety Report 17664152 (Version 6)
Quarter: 2022Q4

REPORT INFORMATION
  Report Type: Report from Study
  Country: JP (occurrence: None)
  Receive Date: 20200414
  Receipt Date: 20221216
  Transmission Date: 20230112
  Serious: Yes (Hospitalization)
  Sender: FDA-Public Use
  Company Number: JP-ROCHE-2543920

PATIENT
  Age: 54 Year
  Sex: Female
  Weight: 48.6 kg

DRUGS (123)
  1. OBINUTUZUMAB [Suspect]
     Active Substance: OBINUTUZUMAB
     Indication: Follicular lymphoma
     Dosage: 1000 MG IV INFUSION, ADMINISTERED ON DAY 1, 8 AND 15 DURING CYCLE 1, AND ON DAY 1 OF SUBSEQUENT CYCL
     Route: 042
     Dates: start: 20190626
  2. BENDAMUSTINE [Suspect]
     Active Substance: BENDAMUSTINE
     Indication: Follicular lymphoma
     Dosage: ADMINISTERED ON DAYS 1 AND 2 FOR CYCLES 1-6 AT A DOSE OF 90 MG/M2/DAY, FOR SIX 28-DAY CYCLES.?DATE O
     Route: 042
     Dates: start: 20190627
  3. OXYCODONE HYDROCHLORIDE [Concomitant]
     Active Substance: OXYCODONE HYDROCHLORIDE
     Indication: Back pain
     Dates: start: 20190611, end: 20190628
  4. OXYCODONE HYDROCHLORIDE [Concomitant]
     Active Substance: OXYCODONE HYDROCHLORIDE
     Indication: Back pain
     Dates: start: 20191212, end: 20191225
  5. OXYCODONE HYDROCHLORIDE [Concomitant]
     Active Substance: OXYCODONE HYDROCHLORIDE
     Dates: start: 20191225, end: 20200201
  6. OXYCODONE HYDROCHLORIDE [Concomitant]
     Active Substance: OXYCODONE HYDROCHLORIDE
     Dates: start: 20200226, end: 20200227
  7. OXYCODONE HYDROCHLORIDE [Concomitant]
     Active Substance: OXYCODONE HYDROCHLORIDE
     Dates: start: 20200304, end: 20200309
  8. OXYCODONE HYDROCHLORIDE [Concomitant]
     Active Substance: OXYCODONE HYDROCHLORIDE
     Dates: start: 20200309, end: 20200309
  9. OXYCODONE HYDROCHLORIDE [Concomitant]
     Active Substance: OXYCODONE HYDROCHLORIDE
     Dates: start: 20200309, end: 20200309
  10. HYALURONATE SODIUM [Concomitant]
     Active Substance: HYALURONATE SODIUM
     Indication: Dry eye
     Route: 047
     Dates: start: 2014
  11. DIQUAFOSOL TETRASODIUM [Concomitant]
     Active Substance: DIQUAFOSOL TETRASODIUM
     Indication: Dry eye
     Route: 047
     Dates: start: 2014
  12. PIRENOXINE [Concomitant]
     Active Substance: PIRENOXINE
     Indication: Cataract
     Route: 047
     Dates: start: 2014
  13. MOMETASONE [Concomitant]
     Active Substance: MOMETASONE
     Indication: Eczema
     Dates: start: 20190304
  14. RESTAMINE [Concomitant]
     Indication: Eczema
     Dosage: KOWA CREAM
     Dates: start: 20190303
  15. SULFAMETHOXAZOLE\TRIMETHOPRIM [Concomitant]
     Active Substance: SULFAMETHOXAZOLE\TRIMETHOPRIM
     Dates: start: 20190627
  16. DEXAMETHASONE SODIUM PHOSPHATE [Concomitant]
     Active Substance: DEXAMETHASONE SODIUM PHOSPHATE
     Indication: Premedication
     Dates: start: 20190627, end: 20190628
  17. DEXAMETHASONE SODIUM PHOSPHATE [Concomitant]
     Active Substance: DEXAMETHASONE SODIUM PHOSPHATE
     Dates: start: 20190726, end: 20190726
  18. DEXAMETHASONE SODIUM PHOSPHATE [Concomitant]
     Active Substance: DEXAMETHASONE SODIUM PHOSPHATE
     Dates: start: 20190823, end: 20191122
  19. DEXAMETHASONE SODIUM PHOSPHATE [Concomitant]
     Active Substance: DEXAMETHASONE SODIUM PHOSPHATE
     Dosage: CYCLE 1 DAY 1 ?START TIME: 09:26?END TIME: 10:09
     Route: 042
     Dates: start: 20190626, end: 20190626
  20. DEXAMETHASONE SODIUM PHOSPHATE [Concomitant]
     Active Substance: DEXAMETHASONE SODIUM PHOSPHATE
     Dosage: CYCLE 1 DAY 8 ?START TIME: 09:27?END TIME: 09:58
     Route: 042
     Dates: start: 20190703, end: 20190703
  21. DEXAMETHASONE SODIUM PHOSPHATE [Concomitant]
     Active Substance: DEXAMETHASONE SODIUM PHOSPHATE
     Dosage: CYCLE 1 DAY 15?START TIME: 10:52?END TIME: 11:19
     Route: 042
     Dates: start: 20190711, end: 20190711
  22. DEXAMETHASONE SODIUM PHOSPHATE [Concomitant]
     Active Substance: DEXAMETHASONE SODIUM PHOSPHATE
     Dosage: CYCLE 2 DAY 1?START TIME: 10:16?END TIME: 10:58
     Route: 042
     Dates: start: 20190725, end: 20190725
  23. DEXAMETHASONE SODIUM PHOSPHATE [Concomitant]
     Active Substance: DEXAMETHASONE SODIUM PHOSPHATE
     Dosage: CYCLE 3 DAY 1?START TIME: 10:25?END TIME: 10:55
     Route: 042
     Dates: start: 20190822, end: 20190822
  24. DEXAMETHASONE SODIUM PHOSPHATE [Concomitant]
     Active Substance: DEXAMETHASONE SODIUM PHOSPHATE
     Dosage: CYCLE 4 DAY 1?START TIME: 09:59?END TIME: 10:37
     Route: 042
     Dates: start: 20190919, end: 20190919
  25. DEXAMETHASONE SODIUM PHOSPHATE [Concomitant]
     Active Substance: DEXAMETHASONE SODIUM PHOSPHATE
     Dosage: CYCLE 5 DAY 1?START TIME: 11:42?END TIME: 12:12
     Route: 042
     Dates: start: 20191024, end: 20191024
  26. DEXAMETHASONE SODIUM PHOSPHATE [Concomitant]
     Active Substance: DEXAMETHASONE SODIUM PHOSPHATE
     Dosage: CYCLE 6 DAY 1?START TIME: 10:06?END TIME: 10:40
     Route: 042
     Dates: start: 20191121, end: 20191121
  27. ALOXI [Concomitant]
     Active Substance: PALONOSETRON HYDROCHLORIDE
     Dosage: INFUSION BAG
     Route: 042
     Dates: start: 20190627, end: 20190628
  28. ALOXI [Concomitant]
     Active Substance: PALONOSETRON HYDROCHLORIDE
     Dosage: INFUSION BAG
     Route: 042
     Dates: start: 20190725, end: 20190725
  29. ALOXI [Concomitant]
     Active Substance: PALONOSETRON HYDROCHLORIDE
     Dosage: INFUSION BAG
     Route: 042
     Dates: start: 20190822, end: 20191121
  30. ALOXI [Concomitant]
     Active Substance: PALONOSETRON HYDROCHLORIDE
     Dosage: INFUSION BAG
     Route: 042
     Dates: start: 20191116, end: 20200129
  31. MILTAX PAP [Concomitant]
     Indication: Neck pain
     Dates: start: 20190629
  32. MILTAX PAP [Concomitant]
     Indication: Back pain
  33. SODIUM PICOSULFATE [Concomitant]
     Active Substance: SODIUM PICOSULFATE
     Indication: Constipation
     Dosage: SOLUTION
     Dates: start: 20190630, end: 20190630
  34. SODIUM PICOSULFATE [Concomitant]
     Active Substance: SODIUM PICOSULFATE
     Dates: start: 20191213, end: 20200205
  35. MAGNESIUM OXIDE [Concomitant]
     Active Substance: MAGNESIUM OXIDE
     Indication: Constipation
     Dates: start: 20190628, end: 20190709
  36. SENNOSIDES [Concomitant]
     Active Substance: SENNOSIDES
     Indication: Constipation
     Dates: start: 20190630, end: 20190707
  37. SENNOSIDES [Concomitant]
     Active Substance: SENNOSIDES
     Dates: start: 20191209
  38. VOALLA [Concomitant]
     Indication: Lymphorrhoea
     Dates: start: 20190725, end: 20190725
  39. SUCRODE PASTA [Concomitant]
     Indication: Lymphorrhoea
     Dates: start: 20190823, end: 20190919
  40. ADETPHOS [Concomitant]
     Active Substance: ADENOSINE TRIPHOSPHATE
     Indication: Deafness neurosensory
     Dosage: KOWA GARNULE 10 %
     Dates: start: 20190808, end: 20190815
  41. METHYLCOBALAMIN [Concomitant]
     Active Substance: METHYLCOBALAMIN
     Indication: Deafness neurosensory
     Dates: start: 20190808, end: 20190815
  42. BERAPROST SODIUM [Concomitant]
     Active Substance: BERAPROST SODIUM
     Indication: Deafness neurosensory
     Dates: start: 20190808, end: 20190815
  43. VOLTAREN [Concomitant]
     Active Substance: DICLOFENAC SODIUM
     Indication: Back pain
     Dates: start: 20191017, end: 20191020
  44. VOLTAREN [Concomitant]
     Active Substance: DICLOFENAC SODIUM
     Indication: Back pain
     Dates: start: 20191021, end: 20191022
  45. VOLTAREN [Concomitant]
     Active Substance: DICLOFENAC SODIUM
     Dates: start: 20191114
  46. LOXOPROFEN SODIUM [Concomitant]
     Active Substance: LOXOPROFEN SODIUM
     Indication: Back pain
     Dates: start: 20191012, end: 20191023
  47. CALONAL [Concomitant]
     Active Substance: ACETAMINOPHEN
     Indication: Back pain
     Dates: start: 20191022, end: 20191022
  48. CALONAL [Concomitant]
     Active Substance: ACETAMINOPHEN
     Indication: Premedication
     Dosage: CYCLE 1 DAY 1?START TIME:10:23?END TIME: 10:23
     Route: 048
     Dates: start: 20190626, end: 20190626
  49. CALONAL [Concomitant]
     Active Substance: ACETAMINOPHEN
     Dosage: CYCLE 1 DAY 8?START TIME:10:20?END TIME: 10:20
     Route: 048
     Dates: start: 20190703, end: 20190703
  50. CALONAL [Concomitant]
     Active Substance: ACETAMINOPHEN
     Dosage: CYCLE 1 DAY 15?START TIME:11:19?END TIME: 11:19
     Route: 048
     Dates: start: 20190711, end: 20190711
  51. CALONAL [Concomitant]
     Active Substance: ACETAMINOPHEN
     Dosage: CYCLE 2 DAY 1?START TIME:10:13?END TIME: 10:13
     Route: 048
     Dates: start: 20190725, end: 20190725
  52. CALONAL [Concomitant]
     Active Substance: ACETAMINOPHEN
     Dosage: CYCLE 3 DAY 1?START TIME:10:25?END TIME: 10:25
     Route: 048
     Dates: start: 20190822, end: 20190822
  53. CALONAL [Concomitant]
     Active Substance: ACETAMINOPHEN
     Dosage: CYCLE 4 DAY 1?START TIME:10:17?END TIME: 10:17
     Route: 048
     Dates: start: 20190919, end: 20190919
  54. CALONAL [Concomitant]
     Active Substance: ACETAMINOPHEN
     Dosage: CYCLE 5 DAY 1?START TIME:11:35?END TIME: 11:35
     Route: 048
     Dates: start: 20191004, end: 20191004
  55. CALONAL [Concomitant]
     Active Substance: ACETAMINOPHEN
     Dosage: CYCLE 6 DAY 1?START TIME:10:05?END TIME: 10:05
     Route: 048
     Dates: start: 20191121, end: 20191121
  56. CALONAL [Concomitant]
     Active Substance: ACETAMINOPHEN
     Dosage: CYCLE 06?DAY 1
     Route: 048
     Dates: start: 20191121, end: 20191121
  57. APRONALIDE\CAFFEINE\IBUPROFEN [Concomitant]
     Active Substance: APRONALIDE\CAFFEINE\IBUPROFEN
     Indication: Back pain
     Dates: start: 20191106
  58. APRONALIDE\CAFFEINE\IBUPROFEN [Concomitant]
     Active Substance: APRONALIDE\CAFFEINE\IBUPROFEN
     Indication: Back pain
     Dates: start: 20191023, end: 20191023
  59. OXYCODONE [Concomitant]
     Active Substance: OXYCODONE
     Indication: Back pain
     Route: 048
     Dates: start: 20191205, end: 20191210
  60. OXYCODONE [Concomitant]
     Active Substance: OXYCODONE
     Route: 048
     Dates: start: 20191210, end: 20191212
  61. OXYCODONE [Concomitant]
     Active Substance: OXYCODONE
     Dates: start: 20191212, end: 20191212
  62. OXYCODONE [Concomitant]
     Active Substance: OXYCODONE
     Dates: start: 20191223, end: 20191225
  63. OXYCODONE [Concomitant]
     Active Substance: OXYCODONE
     Dates: start: 20191225, end: 20200101
  64. OXYCODONE [Concomitant]
     Active Substance: OXYCODONE
     Dates: start: 20200101, end: 20200119
  65. OXYCODONE [Concomitant]
     Active Substance: OXYCODONE
     Dates: start: 20200226, end: 20200226
  66. OXYCODONE [Concomitant]
     Active Substance: OXYCODONE
     Dates: start: 20200227, end: 20200228
  67. OXYCODONE [Concomitant]
     Active Substance: OXYCODONE
     Dates: start: 20200229, end: 20200229
  68. OXYCODONE [Concomitant]
     Active Substance: OXYCODONE
     Dates: start: 20200301, end: 20200301
  69. OXYCODONE [Concomitant]
     Active Substance: OXYCODONE
     Dates: start: 20200302, end: 20200303
  70. OXYCODONE [Concomitant]
     Active Substance: OXYCODONE
     Dates: start: 20200304, end: 20200304
  71. OXYCODONE [Concomitant]
     Active Substance: OXYCODONE
     Dates: start: 20200305, end: 20200305
  72. SYMPROIC [Concomitant]
     Active Substance: NALDEMEDINE
     Dates: start: 20191205, end: 20200208
  73. FEXOFENADINE HYDROCHLORIDE [Concomitant]
     Active Substance: FEXOFENADINE HYDROCHLORIDE
     Indication: Pruritus
     Dates: start: 20191205, end: 20200106
  74. EURAX [Concomitant]
     Active Substance: CROTAMITON
     Indication: Pruritus
     Dates: start: 20191205, end: 20200106
  75. DEXCHLORPHENIRAMINE MALEATE [Concomitant]
     Active Substance: DEXCHLORPHENIRAMINE MALEATE
     Indication: Premedication
     Dosage: CYCLE 1 DAY 1?START TIME: 10:23?END TIME: 10:23
     Route: 048
     Dates: start: 20190626, end: 20190626
  76. DEXCHLORPHENIRAMINE MALEATE [Concomitant]
     Active Substance: DEXCHLORPHENIRAMINE MALEATE
     Dosage: CYCLE 1 DAY 8?START TIME: 10:20?END TIME: 10:20
     Route: 048
     Dates: start: 20190703, end: 20190703
  77. DEXCHLORPHENIRAMINE MALEATE [Concomitant]
     Active Substance: DEXCHLORPHENIRAMINE MALEATE
     Dosage: CYCLE 1 DAY 15?START TIME: 10:44?END TIME: 10:44
     Route: 048
     Dates: start: 20190711, end: 20190711
  78. DEXCHLORPHENIRAMINE MALEATE [Concomitant]
     Active Substance: DEXCHLORPHENIRAMINE MALEATE
     Dosage: CYCLE 2 DAY 1?START TIME: 10:13?END TIME: 10:13
     Route: 048
     Dates: start: 20190725, end: 20190725
  79. DEXCHLORPHENIRAMINE MALEATE [Concomitant]
     Active Substance: DEXCHLORPHENIRAMINE MALEATE
     Dosage: CYCLE 3 DAY 1?START TIME: 10:25?END TIME: 10:25
     Route: 048
     Dates: start: 20190822, end: 20190822
  80. DEXCHLORPHENIRAMINE MALEATE [Concomitant]
     Active Substance: DEXCHLORPHENIRAMINE MALEATE
     Dosage: CYCLE 4 DAY 1?START TIME: 10:17?END TIME: 10:17
     Route: 048
     Dates: start: 20190919, end: 20190919
  81. DEXCHLORPHENIRAMINE MALEATE [Concomitant]
     Active Substance: DEXCHLORPHENIRAMINE MALEATE
     Dosage: CYCLE 5 DAY 1?START TIME: 11:35?END TIME: 11:35
     Route: 048
     Dates: start: 20191024, end: 20191024
  82. DEXCHLORPHENIRAMINE MALEATE [Concomitant]
     Active Substance: DEXCHLORPHENIRAMINE MALEATE
     Dosage: CYCLE 6 DAY 1?START TIME: 10:05?END TIME: 10:05
     Route: 048
     Dates: start: 20191121, end: 20191121
  83. LYRICA [Concomitant]
     Active Substance: PREGABALIN
     Dates: start: 20200214, end: 20200218
  84. LYRICA [Concomitant]
     Active Substance: PREGABALIN
     Dates: start: 20200218, end: 20200219
  85. LYRICA [Concomitant]
     Active Substance: PREGABALIN
     Dates: start: 20200220, end: 20200223
  86. MIROGABALIN BESYLATE [Concomitant]
     Active Substance: MIROGABALIN BESYLATE
     Dates: start: 20200217, end: 20200218
  87. MILTAX PAP [Concomitant]
     Dates: start: 20200204, end: 20200316
  88. LANSOPRAZOLE [Concomitant]
     Active Substance: LANSOPRAZOLE
     Dates: start: 20191214
  89. ZOPICLONE [Concomitant]
     Active Substance: ZOPICLONE
     Dates: start: 20191215
  90. FILGRASTIM [Concomitant]
     Active Substance: FILGRASTIM
     Dates: start: 20191223, end: 20191228
  91. FILGRASTIM [Concomitant]
     Active Substance: FILGRASTIM
     Dates: start: 20200206, end: 20200214
  92. ACETAMINOPHEN [Concomitant]
     Active Substance: ACETAMINOPHEN
     Route: 042
     Dates: start: 20191230, end: 20191230
  93. MEYLON [Concomitant]
     Active Substance: SODIUM BICARBONATE
     Dates: start: 20200106, end: 20200129
  94. HYDROCORTONE [Concomitant]
     Active Substance: HYDROCORTISONE
     Dates: start: 20200106, end: 20200129
  95. POLARAMINE [Concomitant]
     Active Substance: DEXCHLORPHENIRAMINE MALEATE
     Dates: start: 20200106, end: 20200129
  96. PEGFILGRASTIM [Concomitant]
     Active Substance: PEGFILGRASTIM
     Dates: start: 20200109, end: 20200109
  97. KCL [Concomitant]
     Active Substance: POTASSIUM CHLORIDE
     Dates: start: 20200202, end: 20200206
  98. KCL [Concomitant]
     Active Substance: POTASSIUM CHLORIDE
     Dates: start: 20200208, end: 20200211
  99. KCL [Concomitant]
     Active Substance: POTASSIUM CHLORIDE
     Dates: start: 20200209, end: 20200209
  100. KCL [Concomitant]
     Active Substance: POTASSIUM CHLORIDE
     Dates: start: 20200211, end: 20200211
  101. KCL [Concomitant]
     Active Substance: POTASSIUM CHLORIDE
     Dates: start: 20200212, end: 20200212
  102. MAGNESIUM SULFATE [Concomitant]
     Active Substance: MAGNESIUM SULFATE
     Dates: start: 20200219, end: 20200221
  103. HYDROXYZINE HYDROCHLORIDE [Concomitant]
     Active Substance: HYDROXYZINE HYDROCHLORIDE
     Dates: start: 20200208, end: 20200225
  104. HALOPERIDOL [Concomitant]
     Active Substance: HALOPERIDOL
     Dates: start: 20200208, end: 20200225
  105. ACTOSIN OINTMENT [Concomitant]
     Dates: start: 20200214, end: 20200228
  106. ROZEREM [Concomitant]
     Active Substance: RAMELTEON
     Dates: start: 20200218
  107. ZYRTEC (JAPAN) [Concomitant]
     Dates: start: 20200218
  108. PRIMPERAN [Concomitant]
     Active Substance: METOCLOPRAMIDE HYDROCHLORIDE
     Dates: start: 20191120, end: 20200210
  109. ZYPREXA [Concomitant]
     Active Substance: OLANZAPINE
     Dates: start: 20191220, end: 20200207
  110. TRAVELMIN [DIPHENHYDRAMINE;DIPROPHYLLINE] [Concomitant]
     Dates: start: 20200206, end: 20200208
  111. FLUCONAZOLE [Concomitant]
     Active Substance: FLUCONAZOLE
     Dates: start: 20191230, end: 20200106
  112. MEROPENEM [Concomitant]
     Active Substance: MEROPENEM
     Route: 042
     Dates: start: 20200210, end: 20200212
  113. VANCOMYCIN [Concomitant]
     Active Substance: VANCOMYCIN
     Route: 042
     Dates: start: 20200210, end: 20200212
  114. AMPICILLIN [Concomitant]
     Active Substance: AMPICILLIN
     Route: 042
     Dates: start: 20200210, end: 20200212
  115. KENEI ENEMA [Concomitant]
     Dates: start: 20200206, end: 20200206
  116. RITUXIMAB [Concomitant]
     Active Substance: RITUXIMAB
     Route: 041
     Dates: start: 20191213, end: 20200129
  117. PREDONINE [Concomitant]
     Active Substance: PREDNISOLONE
     Route: 042
     Dates: start: 20191216, end: 20200129
  118. PREDONINE [Concomitant]
     Active Substance: PREDNISOLONE
     Route: 042
     Dates: start: 20191214, end: 20200201
  119. PREDONINE [Concomitant]
     Active Substance: PREDNISOLONE
     Route: 042
     Dates: start: 20200202, end: 20200203
  120. ONCOVIN [Concomitant]
     Active Substance: VINCRISTINE SULFATE
     Route: 042
     Dates: start: 20191216, end: 20200129
  121. ADRIACIN [Concomitant]
     Active Substance: DOXORUBICIN HYDROCHLORIDE
     Route: 042
     Dates: start: 20191216, end: 20200129
  122. CYCLOPHOSPHAMIDE [Concomitant]
     Active Substance: CYCLOPHOSPHAMIDE
     Route: 042
     Dates: start: 20191116, end: 20200129
  123. CEFEPIME HYDROCHLORIDE [Concomitant]
     Active Substance: CEFEPIME HYDROCHLORIDE
     Route: 042
     Dates: start: 20200207, end: 20200210

REACTIONS (1)
  - Herpes zoster disseminated [Recovered/Resolved]

NARRATIVE: CASE EVENT DATE: 20200131
